FAERS Safety Report 5213843-1 (Version None)
Quarter: 2007Q1

REPORT INFORMATION
  Report Type: 
  Country: None (occurrence: None)
  Receive Date: 20070117
  Receipt Date: 20070104
  Transmission Date: 20070707
  Serious: Yes (Death, Hospitalization)
  Sender: FDA-Public Use
  Company Number: MEDI-005154

PATIENT
  Age: 4 Month
  Sex: Female
  Weight: 5.7 kg

DRUGS (2)
  1. SYNAGIS [Suspect]
     Indication: PREMATURE BABY
     Dosage: 85.5 MG, 1 IN 1 M, INTRAMUSCULAR
     Route: 030
     Dates: start: 20061113, end: 20061113
  2. ALBUTEROL [Concomitant]

REACTIONS (4)
  - CYANOSIS [None]
  - FEELING COLD [None]
  - IRRITABILITY [None]
  - SKIN WARM [None]
